FAERS Safety Report 17930203 (Version 2)
Quarter: 2020Q2

REPORT INFORMATION
  Report Type: Spontaneous
  Country: DK (occurrence: DK)
  Receive Date: 20200623
  Receipt Date: 20200626
  Transmission Date: 20200714
  Serious: Yes (Other)
  Sender: FDA-Public Use
  Company Number: DK-OTSUKA-2020_014851

PATIENT
  Age: 45 Year
  Sex: Female
  Weight: 61 kg

DRUGS (1)
  1. ABILIFY MAINTENA [Suspect]
     Active Substance: ARIPIPRAZOLE
     Indication: SCHIZOAFFECTIVE DISORDER
     Dosage: 400 MG, EVERY 4 WEEK
     Route: 030
     Dates: start: 20200228

REACTIONS (18)
  - Depressed mood [Unknown]
  - Pain [Unknown]
  - Alopecia [Unknown]
  - Hypometabolism [Unknown]
  - Breast pain [Unknown]
  - Angina pectoris [Unknown]
  - Decreased appetite [Unknown]
  - Pruritus [Unknown]
  - Rash [Unknown]
  - Headache [Unknown]
  - Product use in unapproved indication [Unknown]
  - Menstruation irregular [Unknown]
  - Eczema [Unknown]
  - Toothache [Unknown]
  - Compulsive shopping [Unknown]
  - Vaginal discharge [Unknown]
  - Photophobia [Unknown]
  - Weight increased [Unknown]

NARRATIVE: CASE EVENT DATE: 20200228
